FAERS Safety Report 25192487 (Version 5)
Quarter: 2025Q2

REPORT INFORMATION
  Report Type: Report from Study
  Country: GT (occurrence: GT)
  Receive Date: 20250414
  Receipt Date: 20250617
  Transmission Date: 20250716
  Serious: Yes (Disabling, Other)
  Sender: NOVARTIS
  Company Number: GT-002147023-NVSC2024GT236343

PATIENT
  Age: 75 Year
  Sex: Female

DRUGS (4)
  1. KISQALI [Suspect]
     Active Substance: RIBOCICLIB SUCCINATE
     Indication: Breast cancer
     Dosage: 600 MG, QD
     Route: 048
     Dates: start: 20241121
  2. KISQALI [Suspect]
     Active Substance: RIBOCICLIB SUCCINATE
     Indication: Breast cancer metastatic
     Route: 048
  3. KISQALI [Suspect]
     Active Substance: RIBOCICLIB SUCCINATE
     Dosage: 400 MG, QD (2 DOSAGE FORMS)
     Route: 065
  4. ARIMIDEX [Concomitant]
     Active Substance: ANASTROZOLE
     Indication: Product used for unknown indication
     Dosage: 1 DOSAGE FORM, (1MG) Q24H TABLET
     Route: 065

REACTIONS (27)
  - Cataract [Recovered/Resolved]
  - Oropharyngeal discomfort [Recovering/Resolving]
  - Dysphagia [Recovering/Resolving]
  - Dry throat [Recovering/Resolving]
  - Productive cough [Not Recovered/Not Resolved]
  - Rash erythematous [Recovering/Resolving]
  - Urticaria [Recovering/Resolving]
  - Neutropenia [Unknown]
  - Dyspnoea [Unknown]
  - White blood cell count decreased [Unknown]
  - Neutrophil count decreased [Unknown]
  - Lymphocyte count increased [Unknown]
  - Monocyte count increased [Unknown]
  - Platelet count decreased [Unknown]
  - Mean cell volume increased [Unknown]
  - Mean cell haemoglobin increased [Unknown]
  - Red blood cell count decreased [Unknown]
  - Prothrombin time shortened [Unknown]
  - Blood creatinine increased [Unknown]
  - Constipation [Unknown]
  - Haemorrhoids [Not Recovered/Not Resolved]
  - Malaise [Unknown]
  - Decreased appetite [Unknown]
  - Hypersensitivity [Unknown]
  - Rash macular [Recovering/Resolving]
  - Pain [Unknown]
  - Decreased immune responsiveness [Unknown]

NARRATIVE: CASE EVENT DATE: 20241101
